FAERS Safety Report 11145960 (Version 1)
Quarter: 2015Q2

REPORT INFORMATION
  Report Type: Spontaneous
  Country: US (occurrence: None)
  Receive Date: 20150527
  Receipt Date: 20150527
  Transmission Date: 20150821
  Serious: Yes (Other)
  Sender: FDA-Public Use
  Company Number: None

PATIENT
  Age: 84 Year
  Sex: Female
  Weight: 88.45 kg

DRUGS (10)
  1. VENTOLIN HFA INHALER [Concomitant]
  2. FUROSEMIDE. [Concomitant]
     Active Substance: FUROSEMIDE
  3. BUDESONIDE. [Concomitant]
     Active Substance: BUDESONIDE
  4. IPRAT-ALBUTEROL [Concomitant]
  5. CENTRUM VITAMIN FOR WOMEN OVER 50 [Concomitant]
  6. LEVOTHYROXIN [Concomitant]
     Active Substance: LEVOTHYROXINE
  7. PREDNISONE. [Concomitant]
     Active Substance: PREDNISONE
  8. LOSARTAN POTASSIUM. [Concomitant]
     Active Substance: LOSARTAN POTASSIUM
  9. PROAIR HFA [Suspect]
     Active Substance: ALBUTEROL SULFATE
     Indication: ASTHMA
     Dosage: TWO PUFFS EVERY FOUR HOURS AS NEEDED
     Route: 055
     Dates: start: 20150501, end: 20150514
  10. TYLENOL [Concomitant]
     Active Substance: ACETAMINOPHEN

REACTIONS (5)
  - Incorrect dose administered by device [None]
  - Cough [None]
  - Reaction to drug excipients [None]
  - Device occlusion [None]
  - Dyspnoea [None]

NARRATIVE: CASE EVENT DATE: 20150501
